FAERS Safety Report 4835423-X (Version None)
Quarter: 2005Q4

REPORT INFORMATION
  Report Type: 
  Country: None (occurrence: None)
  Receive Date: 20051118
  Receipt Date: 20051107
  Transmission Date: 20060501
  Serious: Yes (Hospitalization)
  Sender: FDA-Public Use
  Company Number: 2005EU002524

PATIENT
  Age: 40 Year
  Sex: Male

DRUGS (3)
  1. PROGRAF [Suspect]
     Indication: RENAL TRANSPLANT
  2. MYCOPHENOLATE MOFETIL (MYCOPHENOLATE MOFETIL) [Concomitant]
  3. CORTICOSTEROIDS [Concomitant]

REACTIONS (8)
  - B-CELL LYMPHOMA [None]
  - CYTOMEGALOVIRUS INFECTION [None]
  - HEPATIC LESION [None]
  - KIDNEY FIBROSIS [None]
  - LYMPHOPROLIFERATIVE DISORDER [None]
  - POLYOMAVIRUS-ASSOCIATED NEPHROPATHY [None]
  - SPLENIC LESION [None]
  - VIRAL INFECTION [None]
